FAERS Safety Report 4298702-3 (Version None)
Quarter: 2004Q1

REPORT INFORMATION
  Report Type: 
  Country: None (occurrence: None)
  Receive Date: 20040126
  Receipt Date: 20031117
  Transmission Date: 20041129
  Serious: No
  Sender: FDA-Public Use
  Company Number: USA031050861

PATIENT
  Age: 9 Year
  Sex: Female

DRUGS (1)
  1. STRATTERA [Suspect]
     Indication: ATTENTION DEFICIT/HYPERACTIVITY DISORDER
     Dosage: 40 MG/DAY
     Dates: end: 20031027

REACTIONS (4)
  - ALOPECIA [None]
  - HAIR TEXTURE ABNORMAL [None]
  - HYPOTRICHOSIS [None]
  - SKIN ODOUR ABNORMAL [None]
